FAERS Safety Report 10166833 (Version 1)
Quarter: 2014Q2

REPORT INFORMATION
  Report Type: Spontaneous
  Country: US (occurrence: None)
  Receive Date: 20140509
  Receipt Date: 20140509
  Transmission Date: 20141212
  Serious: No
  Sender: FDA-Public Use
  Company Number: None

PATIENT
  Sex: Male
  Weight: 68.04 kg

DRUGS (5)
  1. AMANTADINE HCL 100MG CAPSULE [Suspect]
     Indication: FATIGUE
     Dosage: 60 CAPSULES TWICE DAILY BY MOUTH
     Route: 048
     Dates: start: 20110601, end: 20140407
  2. DEMADEX [Concomitant]
  3. TOPIRAMATE [Concomitant]
  4. ORTHO TRI CYCLEN LO [Concomitant]
  5. AMANTADINE [Concomitant]

REACTIONS (1)
  - Product odour abnormal [None]
